FAERS Safety Report 7444159-0 (Version None)
Quarter: 2011Q2

REPORT INFORMATION
  Report Type: 
  Country: None (occurrence: None)
  Receive Date: 20110419
  Receipt Date: 20110404
  Transmission Date: 20111010
  Serious: Yes (Other)
  Sender: FDA-Public Use
  Company Number: CIP11000505

PATIENT
  Age: 78 Year
  Sex: Female

DRUGS (17)
  1. PLENDIL [Concomitant]
  2. NYSTATIN [Concomitant]
  3. FOSAMAX [Suspect]
     Dosage: 70 MG, ORAL; 70 MG ONCE A WEEK, ORAL
     Route: 048
     Dates: start: 20020107, end: 20021223
  4. FOSAMAX [Suspect]
     Dosage: 70 MG, ORAL; 70 MG ONCE A WEEK, ORAL
     Route: 048
     Dates: start: 20091028, end: 20100118
  5. ALREX /01388302/ (LOTEPREDNOL ETABONATE) [Concomitant]
  6. FORTEO [Concomitant]
  7. SIMVASTATIN [Concomitant]
  8. ACTONEL WITH CALCIUM (COPACKAGED) [Suspect]
     Dosage: 1 TABLET, REGIMEN UNKNOWN, ORAL
     Route: 048
     Dates: start: 20070315, end: 20081015
  9. LEVOXYL [Concomitant]
  10. MELOXICAM [Concomitant]
  11. SULFAMETHOXAZOLE AND TRIMETHOPRIM (SULFAMETHOXAZOLE, TRIMETHOPRIM) [Concomitant]
  12. POTASSIUM CHLORIDE [Concomitant]
  13. ACTONEL [Suspect]
     Dosage: 35 MG, ORAL
     Route: 048
     Dates: start: 20090221
  14. FEXOFENADINE HCL [Concomitant]
  15. TRIAMTERENE AND HYDROCHLOROTHIAZIDE (HYDROCHLOROTHIAZIDE, TRIMATERENE) [Concomitant]
  16. CADUET [Concomitant]
  17. DETROL LA [Concomitant]

REACTIONS (12)
  - ARTHRALGIA [None]
  - STRESS FRACTURE [None]
  - IMPAIRED HEALING [None]
  - GAIT DISTURBANCE [None]
  - PAIN IN EXTREMITY [None]
  - TENDERNESS [None]
  - BONE FORMATION INCREASED [None]
  - FRACTURE DISPLACEMENT [None]
  - FALL [None]
  - PATHOLOGICAL FRACTURE [None]
  - MUSCLE ATROPHY [None]
  - FEMUR FRACTURE [None]
